FAERS Safety Report 7736420-7 (Version None)
Quarter: 2011Q3

REPORT INFORMATION
  Report Type: 
  Country: None (occurrence: None)
  Receive Date: 20110908
  Receipt Date: 20110825
  Transmission Date: 20111222
  Serious: Yes (Hospitalization, Other)
  Sender: FDA-Public Use
  Company Number: US-RANBAXY-2011US-46827

PATIENT
  Age: 35 Year
  Sex: Female

DRUGS (7)
  1. VERAPAMIL [Suspect]
     Dosage: 240 MG, UNK
     Route: 065
  2. NIFEDIPINE [Concomitant]
     Indication: PRODUCT USED FOR UNKNOWN INDICATION
     Dosage: 10 MG,UNK
     Route: 065
  3. VERAPAMIL [Suspect]
     Indication: HYPERTENSION
     Dosage: UNK, UNK
     Route: 065
  4. VERAPAMIL [Suspect]
     Dosage: DOSE WAS HALVED
     Route: 065
  5. BENDROFLUMITHIAZIDE [Concomitant]
     Indication: PRODUCT USED FOR UNKNOWN INDICATION
     Dosage: 2.5 MG, UNK
     Route: 065
  6. CAPTOPRIL [Concomitant]
     Indication: HYPERTENSION
     Dosage: 18.75 MG, UNK
     Route: 065
  7. CAPTOPRIL [Concomitant]
     Dosage: DOSE WAS DOUBLED
     Route: 065

REACTIONS (1)
  - ACUTE MYOCARDIAL INFARCTION [None]
